FAERS Safety Report 7327388-6 (Version None)
Quarter: 2011Q1

REPORT INFORMATION
  Report Type: 
  Country: None (occurrence: None)
  Receive Date: 20110302
  Receipt Date: 20110225
  Transmission Date: 20110831
  Serious: Yes (Hospitalization)
  Sender: FDA-Public Use
  Company Number: US-BRISTOL-MYERS SQUIBB COMPANY-15571367

PATIENT
  Sex: Male

DRUGS (2)
  1. METANX [Interacting]
  2. COUMADIN [Suspect]
     Dosage: 1 DF:5 MG AND 7.5MG 5MG 6DAYS 7.5 ONE DAY

REACTIONS (3)
  - DRUG INTERACTION [None]
  - COLLAPSE OF LUNG [None]
  - INTERNATIONAL NORMALISED RATIO ABNORMAL [None]
